FAERS Safety Report 7349569-8 (Version None)
Quarter: 2011Q1

REPORT INFORMATION
  Report Type: 
  Country: None (occurrence: None)
  Receive Date: 20110314
  Receipt Date: 20110310
  Transmission Date: 20110831
  Serious: Yes (Life-Threatening)
  Sender: FDA-Public Use
  Company Number: JP-ASTRAZENECA-2011SE13308

PATIENT
  Sex: Female

DRUGS (6)
  1. CRESTOR [Suspect]
     Indication: HYPERCHOLESTEROLAEMIA
     Route: 048
     Dates: start: 20101220, end: 20110221
  2. PLAVIX [Suspect]
     Route: 048
     Dates: start: 20101215, end: 20110221
  3. PLETAL [Suspect]
     Route: 048
     Dates: start: 20110101
  4. OMEPRAL [Suspect]
     Route: 048
     Dates: start: 20101220, end: 20110221
  5. ALFAROL [Suspect]
     Route: 048
     Dates: start: 20101201
  6. ASPIRIN [Suspect]
     Route: 048
     Dates: start: 20101201, end: 20110311

REACTIONS (1)
  - INTERSTITIAL LUNG DISEASE [None]
